FAERS Safety Report 4609098-9 (Version None)
Quarter: 2005Q1

REPORT INFORMATION
  Report Type: 
  Country: None (occurrence: None)
  Receive Date: 20050311
  Receipt Date: 20050302
  Transmission Date: 20050727
  Serious: Yes (Life-Threatening)
  Sender: FDA-Public Use
  Company Number: 05GER0075

PATIENT
  Age: 75 Year
  Sex: Female

DRUGS (1)
  1. AGGRASTAT [Suspect]
     Indication: MYOCARDIAL INFARCTION
     Dosage: 12 ML/H
     Dates: start: 20041205, end: 20041205

REACTIONS (4)
  - HAEMORRHAGE [None]
  - PUNCTURE SITE HAEMORRHAGE [None]
  - RETROPERITONEAL HAEMORRHAGE [None]
  - THROMBOCYTOPENIA [None]
